FAERS Safety Report 9768813 (Version 1)
Quarter: 2013Q4

REPORT INFORMATION
  Report Type: Report from Study
  Country: US (occurrence: US)
  Receive Date: 20131218
  Receipt Date: 20131218
  Transmission Date: 20140711
  Serious: Yes (Other)
  Sender: FDA-Public Use
  Company Number: US-ROCHE-1319383

PATIENT
  Sex: Female
  Weight: 12.27 kg

DRUGS (1)
  1. NUTROPIN AQ [Suspect]
     Indication: TURNER^S SYNDROME
     Route: 058

REACTIONS (2)
  - Pallor [Unknown]
  - Nausea [Unknown]
